FAERS Safety Report 16157326 (Version 1)
Quarter: 2019Q2

REPORT INFORMATION
  Report Type: Spontaneous
  Country: US (occurrence: US)
  Receive Date: 20190403
  Receipt Date: 20190403
  Transmission Date: 20190711
  Serious: Yes (Disabling)
  Sender: FDA-Public Use
  Company Number: None

PATIENT
  Age: 63 Year
  Sex: Female
  Weight: 69.3 kg

DRUGS (21)
  1. TUMERIC (RHIZOME) [Concomitant]
  2. VITAMIN D3 [Concomitant]
     Active Substance: CHOLECALCIFEROL
  3. DALFAMPRIDINE. [Suspect]
     Active Substance: DALFAMPRIDINE
     Indication: MULTIPLE SCLEROSIS
     Dosage: ?          QUANTITY:60 TABLET(S);?
     Route: 048
     Dates: start: 20190101, end: 20190403
  4. PAROXETINE (PAXIL) [Concomitant]
  5. LIDOCAINE. [Concomitant]
     Active Substance: LIDOCAINE
  6. LEVOTHYROXINE. [Concomitant]
     Active Substance: LEVOTHYROXINE
  7. 1ADAY MULTIVITAMIN WOMENS 50+ [Concomitant]
  8. ZYRTEC [Concomitant]
     Active Substance: CETIRIZINE HYDROCHLORIDE
  9. CRANBERRY. [Concomitant]
     Active Substance: CRANBERRY
  10. BACLOFEN. [Concomitant]
     Active Substance: BACLOFEN
  11. OCREVUS [Concomitant]
     Active Substance: OCRELIZUMAB
  12. BELBUCCA [Concomitant]
  13. AMPYRA [Concomitant]
     Active Substance: DALFAMPRIDINE
  14. LOSARTIN-HYDROCHLOROTHIAZIDE [Concomitant]
  15. MAGNESIUM [Concomitant]
     Active Substance: MAGNESIUM
  16. BIOTICS (PROBIOTIC) [Concomitant]
  17. VITAMIN B12 [Concomitant]
     Active Substance: CYANOCOBALAMIN
  18. PROVIGIL [Concomitant]
     Active Substance: MODAFINIL
  19. GAS X (SIMITHECONE) [Concomitant]
  20. VITAMIN E [Concomitant]
     Active Substance: .ALPHA.-TOCOPHEROL
  21. VITAMIN C (EMERGENC) [Concomitant]

REACTIONS (3)
  - Product substitution issue [None]
  - Multiple sclerosis [None]
  - Product complaint [None]

NARRATIVE: CASE EVENT DATE: 20190228
